FAERS Safety Report 7559657-9 (Version None)
Quarter: 2011Q2

REPORT INFORMATION
  Report Type: 
  Country: None (occurrence: None)
  Receive Date: 20110621
  Receipt Date: 20110608
  Transmission Date: 20111010
  Serious: Yes (Hospitalization, Other)
  Sender: FDA-Public Use
  Company Number: US-ROCHE-735364

PATIENT
  Sex: Female
  Weight: 170.1 kg

DRUGS (1)
  1. ACCUTANE [Suspect]
     Indication: ACNE
     Route: 065
     Dates: start: 19880101, end: 19890901

REACTIONS (11)
  - OSTEOPENIA [None]
  - ANAL FISTULA [None]
  - PULMONARY EMBOLISM [None]
  - GASTROINTESTINAL INJURY [None]
  - INFLAMMATORY BOWEL DISEASE [None]
  - DEPRESSION [None]
  - CROHN'S DISEASE [None]
  - ANAEMIA [None]
  - COLITIS ULCERATIVE [None]
  - DEEP VEIN THROMBOSIS [None]
  - FEMALE GENITAL TRACT FISTULA [None]
